FAERS Safety Report 23715106 (Version 1)
Quarter: 2024Q2

REPORT INFORMATION
  Report Type: Spontaneous
  Country: GR (occurrence: GR)
  Receive Date: 20240406
  Receipt Date: 20240406
  Transmission Date: 20240716
  Serious: Yes (Other)
  Sender: FDA-Public Use
  Company Number: GR-PRINSTON PHARMACEUTICAL INC.-2024PRN00151

PATIENT
  Sex: Female

DRUGS (3)
  1. ARIPIPRAZOLE [Suspect]
     Active Substance: ARIPIPRAZOLE
     Route: 064
  2. VALPROIC ACID [Suspect]
     Active Substance: VALPROIC ACID
     Dosage: MATERNAL DOSE 1000 MG/DAY
     Route: 064
  3. DIAZEPAM [Suspect]
     Active Substance: DIAZEPAM
     Route: 064

REACTIONS (3)
  - Foetal anticonvulsant syndrome [Not Recovered/Not Resolved]
  - Choroidal coloboma [Not Recovered/Not Resolved]
  - Foetal exposure during pregnancy [Recovered/Resolved]
